FAERS Safety Report 8185514-3 (Version None)
Quarter: 2012Q1

REPORT INFORMATION
  Report Type: 
  Country: None (occurrence: None)
  Receive Date: 20120305
  Receipt Date: 20120224
  Transmission Date: 20120608
  Serious: Yes (Hospitalization)
  Sender: FDA-Public Use
  Company Number: FR-PFIZER INC-2012049016

PATIENT
  Age: 78 Year
  Sex: Male

DRUGS (7)
  1. PARACETAMOL [Concomitant]
     Indication: PREMEDICATION
     Dosage: UNK
     Route: 048
     Dates: start: 20120202, end: 20120202
  2. PREDNISONE TAB [Concomitant]
     Indication: RHEUMATOID ARTHRITIS
     Dosage: UNK
  3. PAROXETINE HYDROCHLORIDE [Concomitant]
  4. GALANTAMINE HYDROBROMIDE [Concomitant]
     Dosage: 1 DF, 1X/DAY
  5. ZYRTEC [Concomitant]
     Indication: PREMEDICATION
     Dosage: UNK
     Route: 048
     Dates: start: 20120202, end: 20120202
  6. SOLU-MEDROL [Suspect]
     Dosage: 100 MG, 1X/DAY
     Route: 042
     Dates: start: 20120202, end: 20120202
  7. MABTHERA [Suspect]
     Indication: RHEUMATOID ARTHRITIS
     Dosage: UNK
     Route: 042
     Dates: start: 20120202, end: 20120202

REACTIONS (4)
  - CONFUSIONAL STATE [None]
  - ORAL FUNGAL INFECTION [None]
  - AGITATION [None]
  - PYREXIA [None]
